FAERS Safety Report 16654726 (Version 1)
Quarter: 2019Q3

REPORT INFORMATION
  Report Type: Spontaneous
  Country: GB (occurrence: GB)
  Receive Date: 20190801
  Receipt Date: 20190801
  Transmission Date: 20191004
  Serious: Yes (Other)
  Sender: FDA-Public Use
  Company Number: GB-ALKEM LABORATORIES LIMITED-GB-ALKEM-2018-09665

PATIENT
  Age: 48 Year
  Sex: Male

DRUGS (2)
  1. CEFUROXIME AXETIL. [Suspect]
     Active Substance: CEFUROXIME AXETIL
     Indication: ANTIBIOTIC PROPHYLAXIS
     Dosage: UNK
     Route: 042
  2. GENTAMICIN. [Suspect]
     Active Substance: GENTAMICIN
     Indication: ANTIBIOTIC PROPHYLAXIS
     Dosage: 240 MG, UNK
     Route: 065

REACTIONS (1)
  - Drug ineffective [Unknown]
